FAERS Safety Report 13536003 (Version 1)
Quarter: 2017Q2

REPORT INFORMATION
  Report Type: Spontaneous
  Country: US (occurrence: US)
  Receive Date: 20170511
  Receipt Date: 20170511
  Transmission Date: 20170830
  Serious: Yes (Disabling)
  Sender: FDA-Public Use
  Company Number: None

PATIENT
  Age: 69 Year
  Sex: Male
  Weight: 87.75 kg

DRUGS (5)
  1. JUXTAPID [Suspect]
     Active Substance: LOMITAPIDE MESYLATE
     Indication: BLOOD CHOLESTEROL INCREASED
     Dosage: ?          QUANTITY:1 CAPSULE(S);?
     Route: 048
     Dates: start: 20130518, end: 20141121
  2. ASPIRIN. [Concomitant]
     Active Substance: ASPIRIN
  3. BYSTOLIC [Concomitant]
     Active Substance: NEBIVOLOL HYDROCHLORIDE
  4. CENTRUM SILVER VITAMINS [Concomitant]
  5. SYNTHROID [Concomitant]
     Active Substance: LEVOTHYROXINE SODIUM

REACTIONS (3)
  - Weight decreased [None]
  - Drug effect decreased [None]
  - Anal incontinence [None]

NARRATIVE: CASE EVENT DATE: 20140618
